FAERS Safety Report 8500221-2 (Version None)
Quarter: 2012Q3

REPORT INFORMATION
  Report Type: 
  Country: None (occurrence: None)
  Receive Date: 20120710
  Receipt Date: 20120629
  Transmission Date: 20120928
  Serious: Yes (Other)
  Sender: FDA-Public Use
  Company Number: JP-ASTRAZENECA-2012SE43222

PATIENT
  Age: 61 Year
  Sex: Female

DRUGS (3)
  1. OMEPRAZOLE [Suspect]
     Indication: GASTROOESOPHAGEAL REFLUX DISEASE
     Route: 048
     Dates: start: 20120525, end: 20120604
  2. MUCOSOLVAN [Suspect]
     Route: 048
     Dates: start: 20120525
  3. KAMISHOYOSAN [Concomitant]
     Route: 048

REACTIONS (3)
  - OROPHARYNGEAL PAIN [None]
  - GINGIVAL SWELLING [None]
  - CHEILITIS [None]
